FAERS Safety Report 8823599 (Version 1)
Quarter: 2012Q4

REPORT INFORMATION
  Report Type: 
  Country: US (occurrence: US)
  Receive Date: 20121003
  Receipt Date: 20121003
  Transmission Date: 20130627
  Serious: Yes (Other)
  Sender: FDA-Public Use
  Company Number: CHPA2012US010156

PATIENT
  Sex: Female

DRUGS (1)
  1. BENEFIBER STICK PACKS [Suspect]
     Indication: MEDICAL DIET
     Dosage: One stick pack
     Route: 048
     Dates: start: 20120406, end: 20120406

REACTIONS (4)
  - Diarrhoea [Not Recovered/Not Resolved]
  - Vomiting [Recovered/Resolved]
  - Nausea [Not Recovered/Not Resolved]
  - Musculoskeletal chest pain [Not Recovered/Not Resolved]
